FAERS Safety Report 6139171-8 (Version None)
Quarter: 2009Q2

REPORT INFORMATION
  Report Type: 
  Country: None (occurrence: None)
  Receive Date: 20090401
  Receipt Date: 20090310
  Transmission Date: 20091009
  Serious: Yes (Other)
  Sender: FDA-Public Use
  Company Number: JP-PFIZER INC-2009185243

PATIENT

DRUGS (2)
  1. MIGLITOL [Suspect]
     Dosage: UNK
     Route: 048
     Dates: start: 20070101
  2. MELBIN [Suspect]
     Dosage: 500 MG
     Route: 048

REACTIONS (2)
  - HYPOGLYCAEMIA [None]
  - LOSS OF CONSCIOUSNESS [None]
